FAERS Safety Report 6664213-0 (Version None)
Quarter: 2010Q2

REPORT INFORMATION
  Report Type: 
  Country: None (occurrence: None)
  Receive Date: 20100401
  Receipt Date: 20100311
  Transmission Date: 20101027
  Serious: Yes (Other)
  Sender: FDA-Public Use
  Company Number: CHPA2010US04937

PATIENT
  Age: 61 Year
  Sex: Female

DRUGS (1)
  1. EX-LAX UNKNOWN SENNA (NCH) [Suspect]
     Indication: BOWEL MOVEMENT IRREGULARITY
     Dosage: 9 DF, PER DAY
     Route: 048

REACTIONS (3)
  - DRUG DEPENDENCE [None]
  - NO ADVERSE EVENT [None]
  - OVERDOSE [None]
